FAERS Safety Report 9982538 (Version 1)
Quarter: 2014Q1

REPORT INFORMATION
  Report Type: Report from Study
  Country: US (occurrence: US)
  Receive Date: 20140307
  Receipt Date: 20140307
  Transmission Date: 20141002
  Serious: No
  Sender: FDA-Public Use
  Company Number: US-ABBVIE-13P-163-1180493-00

PATIENT
  Age: 48 Year
  Sex: Male

DRUGS (9)
  1. HUMIRA [Suspect]
     Indication: COLITIS ULCERATIVE
     Dates: start: 20131107, end: 20131107
  2. HUMIRA [Suspect]
     Dates: start: 20131121, end: 20131121
  3. HUMIRA [Suspect]
     Dates: start: 2013
  4. WARFARIN [Concomitant]
     Indication: ANTICOAGULANT THERAPY
  5. IMODIUM [Concomitant]
     Indication: PROPHYLAXIS AGAINST DIARRHOEA
  6. SULFASALAZINE [Concomitant]
     Indication: COLITIS ULCERATIVE
  7. PROZAC [Concomitant]
     Indication: DEPRESSION
  8. TRAMADOL [Concomitant]
     Indication: PAIN
     Dosage: AS REQUIRED
  9. ACETAMINOPHEN [Concomitant]
     Indication: PAIN

REACTIONS (2)
  - Poor quality drug administered [Recovered/Resolved]
  - Incorrect product storage [Recovered/Resolved]
